FAERS Safety Report 17889586 (Version 1)
Quarter: 2020Q2

REPORT INFORMATION
  Report Type: Spontaneous
  Country: JP (occurrence: JP)
  Receive Date: 20200612
  Receipt Date: 20200612
  Transmission Date: 20200714
  Serious: Yes (Life-Threatening, Other)
  Sender: FDA-Public Use
  Company Number: JP-SA-2020SA148010

PATIENT

DRUGS (17)
  1. P-TOL [SUCROFERRIC OXYHYDROXIDE] [Suspect]
     Active Substance: SUCROFERRIC OXYHYDROXIDE
     Indication: HYPERPHOSPHATAEMIA
     Dosage: 1.5 G
     Route: 048
     Dates: start: 20190527, end: 20190903
  2. OXAROL [Concomitant]
     Active Substance: MAXACALCITOL
     Dosage: UNK
     Dates: start: 20190208
  3. LANSOPRAZOLE. [Concomitant]
     Active Substance: LANSOPRAZOLE
  4. RIONA [Suspect]
     Active Substance: FERRIC CITRATE ANHYDROUS
     Indication: HYPERPHOSPHATAEMIA
     Dosage: 4.5 G
     Route: 048
  5. EVOCALCET [Suspect]
     Active Substance: EVOCALCET
     Indication: HYPERPARATHYROIDISM SECONDARY
     Dosage: 1 MG, QD
     Route: 048
     Dates: start: 20190121
  6. ALFACALCIDOL [Concomitant]
     Active Substance: ALFACALCIDOL
  7. BAYASPIRIN [Concomitant]
     Active Substance: ASPIRIN
  8. NESP [Concomitant]
     Active Substance: DARBEPOETIN ALFA
  9. L CARTIN FF [Concomitant]
     Active Substance: LEVOCARNITINE
  10. PHOSBLOCK [Suspect]
     Active Substance: FERRIC HYDROXIDE
     Indication: HYPERPHOSPHATAEMIA
     Dosage: 0.75 G
     Route: 048
     Dates: start: 20190204, end: 20190902
  11. KEYTRUDA [Suspect]
     Active Substance: PEMBROLIZUMAB
     Indication: PRODUCT USED FOR UNKNOWN INDICATION
     Dosage: UNK
     Route: 065
  12. FESIN [SACCHARATED IRON OXIDE] [Concomitant]
     Active Substance: IRON SUCROSE
  13. EPOETIN ALFA BS [Concomitant]
     Active Substance: ERYTHROPOIETIN
  14. PHOSBLOCK [Suspect]
     Active Substance: FERRIC HYDROXIDE
     Dosage: 0.75 G
     Route: 048
     Dates: start: 20191209
  15. NALFURAFINE HYDROCHLORIDE OD [Concomitant]
  16. REZALTAS [Concomitant]
     Active Substance: AZELNIDIPINE\OLMESARTAN MEDOXOMIL
  17. DARBEPOETIN ALFA [Concomitant]
     Active Substance: DARBEPOETIN ALFA

REACTIONS (4)
  - Lung neoplasm malignant [Not Recovered/Not Resolved]
  - Hypozincaemia [Recovered/Resolved]
  - Constipation [Recovered/Resolved]
  - Decreased appetite [Not Recovered/Not Resolved]

NARRATIVE: CASE EVENT DATE: 20190603
